FAERS Safety Report 24380222 (Version 1)
Quarter: 2024Q3

REPORT INFORMATION
  Report Type: Report from Study
  Country: CA (occurrence: CA)
  Receive Date: 20240930
  Receipt Date: 20240930
  Transmission Date: 20241017
  Serious: Yes (Hospitalization, Other)
  Sender: BAUSCH AND LOMB
  Company Number: CA-BAUSCH-BL-2021-013217

PATIENT
  Age: 61 Year
  Sex: Female
  Weight: 70 kg

DRUGS (49)
  1. ACETYLCHOLINE CHLORIDE [Suspect]
     Active Substance: ACETYLCHOLINE CHLORIDE
     Indication: Product used for unknown indication
     Route: 065
  2. MIOCHOL E [Suspect]
     Active Substance: ACETYLCHOLINE CHLORIDE
     Indication: Product used for unknown indication
     Dosage: POWDER FOR SOLUTION OPHTHALMIC
     Route: 065
  3. ARNUITY ELLIPTA [Suspect]
     Active Substance: FLUTICASONE FUROATE
     Indication: Product used for unknown indication
     Route: 065
  4. ARNUITY ELLIPTA [Suspect]
     Active Substance: FLUTICASONE FUROATE
     Route: 065
  5. ATROVENT [Suspect]
     Active Substance: IPRATROPIUM BROMIDE
     Indication: Product used for unknown indication
     Route: 065
  6. ATROVENT [Suspect]
     Active Substance: IPRATROPIUM BROMIDE
     Dosage: NOT SPECIFIED
     Route: 065
  7. CLONAZEPAM [Suspect]
     Active Substance: CLONAZEPAM
     Indication: Product used for unknown indication
     Route: 065
  8. CLONAZEPAM [Suspect]
     Active Substance: CLONAZEPAM
     Route: 065
  9. CLONAZEPAM [Suspect]
     Active Substance: CLONAZEPAM
     Route: 065
  10. DEXTROMETHORPHAN [Suspect]
     Active Substance: DEXTROMETHORPHAN
     Indication: Product used for unknown indication
     Dosage: NOT SPECIFIED
     Route: 065
  11. DEXTROMETHORPHAN [Suspect]
     Active Substance: DEXTROMETHORPHAN
     Route: 065
  12. DEXTROMETHORPHAN [Suspect]
     Active Substance: DEXTROMETHORPHAN
     Dosage: NOT SPECIFIED
     Route: 065
  13. HYDROMORPHONE HYDROCHLORIDE [Suspect]
     Active Substance: HYDROMORPHONE HYDROCHLORIDE
     Indication: Product used for unknown indication
     Dosage: SOLUTION INTRAMUSCULAR
     Route: 065
  14. HYDROMORPHONE HYDROCHLORIDE [Suspect]
     Active Substance: HYDROMORPHONE HYDROCHLORIDE
     Route: 065
  15. ALBUTEROL\IPRATROPIUM [Suspect]
     Active Substance: ALBUTEROL\IPRATROPIUM
     Indication: Product used for unknown indication
     Route: 065
  16. ALBUTEROL\IPRATROPIUM [Suspect]
     Active Substance: ALBUTEROL\IPRATROPIUM
     Route: 065
  17. LETROZOLE [Suspect]
     Active Substance: LETROZOLE
     Indication: Product used for unknown indication
     Route: 065
  18. MOMETASONE FUROATE [Suspect]
     Active Substance: MOMETASONE FUROATE
     Indication: Product used for unknown indication
     Dosage: NOT SPECIFIED
     Route: 065
  19. MOXIFLOXACIN HYDROCHLORIDE [Suspect]
     Active Substance: MOXIFLOXACIN HYDROCHLORIDE\MOXIFLOXACIN HYDROCHLORIDE MONOHYDRATE
     Indication: Antibiotic therapy
     Route: 065
  20. MUCOMYST [Suspect]
     Active Substance: ACETYLCYSTEINE
     Indication: Product used for unknown indication
     Route: 055
  21. MUCOMYST [Suspect]
     Active Substance: ACETYLCYSTEINE
     Dosage: LIQUID INHALATION(200MG/ML).
     Route: 065
  22. OMEPRAZOLE [Suspect]
     Active Substance: OMEPRAZOLE
     Indication: Product used for unknown indication
     Dosage: NOT SPECIFIED
     Route: 048
  23. PREDNISONE [Suspect]
     Active Substance: PREDNISONE
     Indication: Sinus disorder
     Dosage: NOT SPECIFIED
     Route: 065
  24. PREDNISONE [Suspect]
     Active Substance: PREDNISONE
     Dosage: NOT SPECIFIED
     Route: 065
  25. PULMICORT TURBUHALER [Suspect]
     Active Substance: BUDESONIDE
     Indication: Product used for unknown indication
     Dosage: NOT SPECIFIED
     Route: 055
  26. PULMICORT TURBUHALER [Suspect]
     Active Substance: BUDESONIDE
     Dosage: NOT SPECIFIED
     Route: 055
  27. SERTRALINE HYDROCHLORIDE [Suspect]
     Active Substance: SERTRALINE HYDROCHLORIDE
     Indication: Product used for unknown indication
     Route: 065
  28. SERTRALINE HYDROCHLORIDE [Suspect]
     Active Substance: SERTRALINE HYDROCHLORIDE
     Route: 065
  29. THEOPHYLLINE [Suspect]
     Active Substance: THEOPHYLLINE
     Indication: Product used for unknown indication
     Dosage: NOT SPECIFIED
     Route: 065
  30. TRELEGY ELLIPTA [Suspect]
     Active Substance: FLUTICASONE FUROATE\UMECLIDINIUM BROMIDE\VILANTEROL TRIFENATATE
     Indication: Product used for unknown indication
     Route: 055
  31. TRELEGY ELLIPTA [Suspect]
     Active Substance: FLUTICASONE FUROATE\UMECLIDINIUM BROMIDE\VILANTEROL TRIFENATATE
     Route: 055
  32. TRELEGY ELLIPTA [Suspect]
     Active Substance: FLUTICASONE FUROATE\UMECLIDINIUM BROMIDE\VILANTEROL TRIFENATATE
     Route: 065
  33. TYLENOL [Suspect]
     Active Substance: ACETAMINOPHEN
     Indication: Product used for unknown indication
     Dosage: NOT SPECIFIED
     Route: 065
  34. UMECLIDINIUM BROMIDE\VILANTEROL TRIFENATATE [Suspect]
     Active Substance: UMECLIDINIUM BROMIDE\VILANTEROL TRIFENATATE
     Indication: Product used for unknown indication
     Route: 065
  35. VITAMIN D NOS [Suspect]
     Active Substance: CHOLECALCIFEROL\ERGOCALCIFEROL
     Indication: Product used for unknown indication
     Dosage: NOT SPECIFIED
     Route: 065
  36. ANORO ELLIPTA [Suspect]
     Active Substance: UMECLIDINIUM BROMIDE\VILANTEROL TRIFENATATE
     Indication: Product used for unknown indication
     Dosage: ANORO ELLIPTA POWDER FOR ORAL INHALATION
     Route: 065
  37. AVELOX [Suspect]
     Active Substance: MOXIFLOXACIN HYDROCHLORIDE
     Indication: Antibiotic therapy
     Dosage: NOT SPECIFIED
     Route: 065
  38. COMBIVENT [Suspect]
     Active Substance: ALBUTEROL SULFATE\IPRATROPIUM BROMIDE
     Indication: Product used for unknown indication
     Route: 065
  39. COMBIVENT [Suspect]
     Active Substance: ALBUTEROL SULFATE\IPRATROPIUM BROMIDE
     Route: 065
  40. ERGOCALCIFEROL [Suspect]
     Active Substance: ERGOCALCIFEROL
     Indication: Product used for unknown indication
     Dosage: NOT SPECIFIED
     Route: 065
  41. ERGOCALCIFEROL [Suspect]
     Active Substance: ERGOCALCIFEROL
     Route: 065
  42. ALBUTEROL [Suspect]
     Active Substance: ALBUTEROL
     Indication: Asthma
     Route: 065
  43. MOMETASONE [Suspect]
     Active Substance: MOMETASONE
     Indication: Product used for unknown indication
     Route: 065
  44. ATIVAN [Suspect]
     Active Substance: LORAZEPAM
     Indication: Product used for unknown indication
     Route: 065
  45. ATIVAN [Suspect]
     Active Substance: LORAZEPAM
     Route: 065
  46. ATIVAN [Suspect]
     Active Substance: LORAZEPAM
     Route: 065
  47. ALBUTEROL SULFATE [Suspect]
     Active Substance: ALBUTEROL SULFATE
     Indication: Asthma
     Route: 065
  48. ALBUTEROL [Suspect]
     Active Substance: ALBUTEROL
     Indication: Asthma
     Route: 065
  49. ALBUTEROL [Suspect]
     Active Substance: ALBUTEROL
     Route: 065

REACTIONS (29)
  - Breast conserving surgery [Recovered/Resolved]
  - Full blood count abnormal [Recovered/Resolved]
  - Breast cancer [Recovered/Resolved]
  - Dyspnoea [Recovered/Resolved]
  - Eosinophilia [Recovered/Resolved]
  - Loss of personal independence in daily activities [Recovered/Resolved]
  - Malaise [Recovered/Resolved]
  - Mental disorder [Recovered/Resolved]
  - Mental impairment [Recovered/Resolved]
  - Sinus disorder [Recovered/Resolved]
  - Sinusitis [Recovered/Resolved]
  - Sleep disorder [Recovered/Resolved]
  - Sleep disorder due to a general medical condition [Recovered/Resolved]
  - Obstruction [Recovered/Resolved]
  - Rhinorrhoea [Recovered/Resolved]
  - Pneumonia [Recovered/Resolved]
  - Chronic obstructive pulmonary disease [Recovered/Resolved]
  - Asthma [Recovered/Resolved]
  - Productive cough [Recovered/Resolved]
  - Nasal congestion [Recovered/Resolved]
  - Cough [Recovered/Resolved]
  - Wheezing [Recovered/Resolved]
  - Chest discomfort [Recovered/Resolved]
  - Respiratory disorder [Recovered/Resolved]
  - Anxiety [Recovered/Resolved]
  - Depression [Recovered/Resolved]
  - Hypertension [Recovered/Resolved]
  - Tremor [Recovered/Resolved]
  - Therapeutic product effect incomplete [Recovered/Resolved]
